FAERS Safety Report 18785324 (Version 1)
Quarter: 2021Q1

REPORT INFORMATION
  Report Type: Spontaneous
  Country: CN (occurrence: CN)
  Receive Date: 20210125
  Receipt Date: 20210125
  Transmission Date: 20210419
  Serious: Yes (Other)
  Sender: FDA-Public Use
  Company Number: CN-PFIZER INC-2021046241

PATIENT
  Age: 12 Month
  Sex: Female
  Weight: 12.5 kg

DRUGS (3)
  1. GLUCOSE [Concomitant]
     Active Substance: DEXTROSE
     Indication: VEHICLE SOLUTION USE
     Dosage: 50 ML, 1X/DAY
     Route: 041
     Dates: start: 20201220, end: 20201220
  2. SOLU?MEDROL [Suspect]
     Active Substance: METHYLPREDNISOLONE SODIUM SUCCINATE
     Indication: BRONCHITIS
  3. SOLU?MEDROL [Suspect]
     Active Substance: METHYLPREDNISOLONE SODIUM SUCCINATE
     Indication: HERPANGINA
     Dosage: 25 MG, 1X/DAY
     Route: 041
     Dates: start: 20201220, end: 20201220

REACTIONS (6)
  - Cough [Recovered/Resolved]
  - Pallor [Recovered/Resolved]
  - Dysphoria [Recovered/Resolved]
  - Off label use [Unknown]
  - Tachypnoea [Recovered/Resolved]
  - Nasal flaring [Recovered/Resolved]

NARRATIVE: CASE EVENT DATE: 20201220
